FAERS Safety Report 5575405-6 (Version None)
Quarter: 2007Q4

REPORT INFORMATION
  Report Type: 
  Country: None (occurrence: None)
  Receive Date: 20071227
  Receipt Date: 20071203
  Transmission Date: 20080405
  Serious: No
  Sender: FDA-Public Use
  Company Number: US-BOEHRINGER INGELHEIM PHARMACEUTICALS, INC.-2007-BP-25600BP

PATIENT
  Sex: Male

DRUGS (2)
  1. ATROVENT HFA [Suspect]
     Indication: EMPHYSEMA
     Route: 055
     Dates: start: 20070901
  2. ATENOLOL [Concomitant]
     Indication: BLOOD PRESSURE

REACTIONS (1)
  - DYSGEUSIA [None]
